FAERS Safety Report 12236006 (Version 4)
Quarter: 2016Q3

REPORT INFORMATION
  Report Type: Spontaneous
  Country: GB (occurrence: GB)
  Receive Date: 20160404
  Receipt Date: 20160810
  Transmission Date: 20161109
  Serious: Yes (Other)
  Sender: FDA-Public Use
  Company Number: GB-INCYTE CORPORATION-2016IN001909

PATIENT
  Age: 62 Year
  Sex: Male
  Weight: 72 kg

DRUGS (21)
  1. INSULIN [Concomitant]
     Active Substance: INSULIN NOS
     Indication: DIABETES MELLITUS
     Dosage: UNK
     Route: 065
  2. INSULIN [Concomitant]
     Active Substance: INSULIN NOS
     Dosage: 48 U, PER DAY
     Route: 065
  3. ATORVASTATIN [Concomitant]
     Active Substance: ATORVASTATIN
     Indication: CARDIOVASCULAR DISORDER
     Dosage: 1 DF, QD
     Route: 065
     Dates: start: 20160219, end: 20160227
  4. DOXAZOSIN [Concomitant]
     Active Substance: DOXAZOSIN\DOXAZOSIN MESYLATE
     Indication: HYPERTENSION
     Dosage: UNK UNK, BID
     Route: 065
     Dates: start: 20160219, end: 20160427
  5. MEBEVERINE [Concomitant]
     Active Substance: MEBEVERINE
     Indication: IRRITABLE BOWEL SYNDROME
     Dosage: 1 DF, TID (84 TEBLETS)
     Route: 065
     Dates: start: 20160219, end: 20160427
  6. INSULIN [Concomitant]
     Active Substance: INSULIN NOS
     Dosage: 48 U, PER DAY
     Route: 065
  7. IRBESARTAN. [Concomitant]
     Active Substance: IRBESARTAN
     Indication: HYPERTENSION
     Dosage: 1 DF, QD
     Route: 065
     Dates: start: 20160219, end: 20160427
  8. LEVEMIR [Concomitant]
     Active Substance: INSULIN DETEMIR
     Indication: DIABETES MELLITUS
     Dosage: 5 CARTRIDGE, USE AS DIRECTED
     Route: 065
     Dates: start: 20160219, end: 20160427
  9. QVAR [Concomitant]
     Active Substance: BECLOMETHASONE DIPROPIONATE
     Indication: SEASONAL ALLERGY
     Dosage: INHALE 1 DOSE TWICE A DAILY (200 DOSE)
     Route: 065
     Dates: start: 20160219, end: 20160427
  10. FUROSEMIDE. [Concomitant]
     Active Substance: FUROSEMIDE
     Indication: OEDEMA PERIPHERAL
     Dosage: 2 DF, (TWO EACH MORNING AS DIRECTED) (56 TABLETES)
     Route: 065
     Dates: start: 20160330, end: 20160510
  11. FELODIPINE. [Concomitant]
     Active Substance: FELODIPINE
     Indication: HYPERTENSION
     Dosage: 1 DF, QD (28 TABLETES)
     Route: 065
     Dates: start: 20160426, end: 20160427
  12. EMOZUL [Concomitant]
     Indication: HIATUS HERNIA
     Dosage: 1 DF, QD
     Route: 065
     Dates: start: 20160219, end: 20160427
  13. BISOPROLOL [Concomitant]
     Active Substance: BISOPROLOL
     Indication: HYPERTENSION
     Dosage: 1 DF, QD
     Route: 065
     Dates: start: 20160219, end: 20160427
  14. ASPIRIN//ACETYLSALICYLIC ACID [Concomitant]
     Active Substance: ASPIRIN
     Indication: HYPERTENSION
     Dosage: 1 DF, QD (28 TABLETES)
     Route: 065
     Dates: start: 20160219, end: 20160427
  15. BECLOMETASONE [Concomitant]
     Active Substance: BECLOMETHASONE DIPROPIONATE
     Indication: SEASONAL ALLERGY
     Dosage: UNK UNK, QD (2 PUFFS TWICE DAILY, 200 DOSE)
     Route: 065
     Dates: start: 20160219, end: 20160427
  16. BRICANYL [Concomitant]
     Active Substance: TERBUTALINE SULFATE
     Indication: SEASONAL ALLERGY
     Dosage: UNK UNK, PRN (INHALE 1 DOSE AS NEEDED, 100 DOSE)
     Route: 065
     Dates: start: 20160219, end: 20160427
  17. LORATADINE. [Concomitant]
     Active Substance: LORATADINE
     Indication: SEASONAL ALLERGY
     Dosage: 1 DF, QD (30 TABLETES)
     Route: 065
     Dates: start: 20160219, end: 20160427
  18. JAKAFI [Suspect]
     Active Substance: RUXOLITINIB
     Indication: POLYCYTHAEMIA
     Dosage: UNKNOWN
     Route: 065
  19. INSULIN [Concomitant]
     Active Substance: INSULIN NOS
     Dosage: 29 U, UNK
  20. INSULIN [Concomitant]
     Active Substance: INSULIN NOS
     Dosage: 29 U, UNK
     Route: 065
  21. NOVORAPID [Concomitant]
     Active Substance: INSULIN ASPART
     Indication: DIABETES MELLITUS
     Dosage: 10 CARTRIDGE, USE AS DIRECTED
     Route: 065
     Dates: start: 20160219, end: 20160427

REACTIONS (3)
  - Hypoglycaemia [Recovered/Resolved]
  - Albuminuria [Unknown]
  - Oedema peripheral [Unknown]

NARRATIVE: CASE EVENT DATE: 20160303
